FAERS Safety Report 10360946 (Version 1)
Quarter: 2014Q3

REPORT INFORMATION
  Report Type: Spontaneous
  Country: CN (occurrence: CN)
  Receive Date: 20140804
  Receipt Date: 20140804
  Transmission Date: 20150326
  Serious: Yes (Hospitalization)
  Sender: FDA-Public Use
  Company Number: CN-PFIZER INC-2014214214

PATIENT
  Age: 52 Year
  Sex: Male
  Weight: 50 kg

DRUGS (4)
  1. DEANXIT [Suspect]
     Active Substance: FLUPENTIXOL DIHYDROCHLORIDE\MELITRACEN HYDROCHLORIDE
     Dosage: UNK
     Dates: start: 201209
  2. ZOLOFT [Suspect]
     Active Substance: SERTRALINE HYDROCHLORIDE
     Dosage: 50 MG, 1X/DAY
     Route: 048
     Dates: start: 20120901, end: 20130316
  3. SIFROL [Suspect]
     Active Substance: PRAMIPEXOLE
     Dosage: UNK
     Dates: start: 201209
  4. MADOPAR [Suspect]
     Active Substance: BENSERAZIDE HYDROCHLORIDE\LEVODOPA
     Dosage: UNK
     Dates: start: 201209

REACTIONS (10)
  - Diplopia [Recovering/Resolving]
  - Sleep talking [Recovering/Resolving]
  - Dizziness [Recovering/Resolving]
  - Dysphagia [Recovering/Resolving]
  - Condition aggravated [Recovering/Resolving]
  - Drug ineffective [Recovering/Resolving]
  - Muscular weakness [Recovering/Resolving]
  - Constipation [Recovering/Resolving]
  - Dyspnoea [Recovering/Resolving]
  - Hyperacusis [Recovering/Resolving]

NARRATIVE: CASE EVENT DATE: 20130201
